FAERS Safety Report 7058313-3 (Version None)
Quarter: 2010Q4

REPORT INFORMATION
  Report Type: 
  Country: None (occurrence: None)
  Receive Date: 20101022
  Receipt Date: 20101019
  Transmission Date: 20110411
  Serious: Yes (Death, Life-Threatening)
  Sender: FDA-Public Use
  Company Number: IT-CELGENEUS-083-21880-10061073

PATIENT
  Sex: Male

DRUGS (1)
  1. REVLIMID [Suspect]
     Indication: MULTIPLE MYELOMA
     Route: 048
     Dates: start: 20090824, end: 20100419

REACTIONS (1)
  - MULTIPLE MYELOMA [None]
